FAERS Safety Report 8396426-4 (Version None)
Quarter: 2012Q1

REPORT INFORMATION
  Report Type: 
  Country: None (occurrence: None)
  Receive Date: 20120323
  Receipt Date: 20111128
  Transmission Date: 20120608
  Serious: Yes (Other)
  Sender: FDA-Public Use
  Company Number: 163-21880-11073037

PATIENT
  Age: 81 Year
  Sex: Female

DRUGS (6)
  1. ZOMETA [Concomitant]
  2. ASPIRIN [Concomitant]
  3. REVLIMID [Suspect]
  4. DEXAMETHASONE [Concomitant]
  5. REVLIMID [Suspect]
     Indication: MULTIPLE MYELOMA
     Dosage: 10;20 MG, QD FOR 28 DAYS, 2 IN 1 D, PO
     Route: 048
     Dates: start: 20111101
  6. REVLIMID [Suspect]
     Indication: MULTIPLE MYELOMA
     Dosage: 10;20 MG, QD FOR 28 DAYS, 2 IN 1 D, PO
     Route: 048
     Dates: start: 20110407

REACTIONS (2)
  - PANCYTOPENIA [None]
  - RASH [None]
